FAERS Safety Report 9133266 (Version 4)
Quarter: 2013Q4

REPORT INFORMATION
  Report Type: Spontaneous
  Country: US (occurrence: US)
  Receive Date: 20130301
  Receipt Date: 20131210
  Transmission Date: 20140711
  Serious: Yes (Hospitalization, Disabling, Other)
  Sender: FDA-Public Use
  Company Number: US-009507513-1303USA000344

PATIENT
  Sex: Female
  Weight: 66.21 kg

DRUGS (6)
  1. FOSAMAX [Suspect]
     Indication: OSTEOPENIA
     Dosage: 5 MG, UNK
     Route: 048
     Dates: start: 1999, end: 201103
  2. FOSAMAX [Suspect]
     Dosage: 70 MG, UNK
     Route: 048
     Dates: end: 201103
  3. ALENDRONATE SODIUM [Suspect]
     Indication: OSTEOPENIA
     Dosage: 70 MG, UNK
     Route: 048
     Dates: start: 20080329, end: 20100118
  4. BENICAR [Concomitant]
     Indication: HYPERTENSION
     Dosage: UNK
     Dates: start: 20050812, end: 20070625
  5. ACTONEL [Concomitant]
     Indication: OSTEOPENIA
     Dosage: 150 MG, UNK
     Dates: start: 20100608, end: 20100831
  6. CYMBALTA [Concomitant]
     Indication: DEPRESSION
     Dosage: UNK
     Dates: start: 20090612

REACTIONS (28)
  - Intramedullary rod insertion [Recovered/Resolved]
  - Femur fracture [Recovered/Resolved]
  - Intramedullary rod insertion [Recovered/Resolved]
  - Low turnover osteopathy [Not Recovered/Not Resolved]
  - Femur fracture [Recovered/Resolved]
  - Foot fracture [Unknown]
  - Bone disorder [Unknown]
  - Stress fracture [Unknown]
  - Foot fracture [Recovered/Resolved]
  - Osteoporosis [Unknown]
  - Blood cholesterol increased [Unknown]
  - Insomnia [Unknown]
  - Bursitis [Unknown]
  - Bunion [Unknown]
  - Arthropathy [Unknown]
  - Foot deformity [Unknown]
  - Metatarsus primus varus [Unknown]
  - Lateral patellar compression syndrome [Unknown]
  - Foot deformity [Unknown]
  - Exostosis [Unknown]
  - Rotator cuff syndrome [Unknown]
  - Tendonitis [Unknown]
  - Fall [Unknown]
  - Foot fracture [Recovered/Resolved]
  - Osteoarthritis [Unknown]
  - Foot fracture [Unknown]
  - Pain [Unknown]
  - Back pain [Not Recovered/Not Resolved]
